FAERS Safety Report 23848115 (Version 1)
Quarter: 2024Q2

REPORT INFORMATION
  Report Type: Spontaneous
  Country: US (occurrence: None)
  Receive Date: 20240510
  Receipt Date: 20240510
  Transmission Date: 20240715
  Serious: Yes (Hospitalization)
  Sender: FDA-Public Use
  Company Number: None

PATIENT
  Age: 27 Year
  Sex: Male

DRUGS (4)
  1. RENFLEXIS [Suspect]
     Active Substance: INFLIXIMAB-ABDA
     Indication: Colitis ulcerative
     Dosage: OTHER STRENGTH : 100 MG/VL;?OTHER FREQUENCY : EVERY 8 WEEKS;?
     Route: 042
     Dates: start: 202404
  2. STERILE WATER. INJ [Concomitant]
  3. SODIUM CHLOR [Concomitant]
  4. NORMAL SALINE FLUSH [Concomitant]

REACTIONS (1)
  - Colitis ulcerative [None]

NARRATIVE: CASE EVENT DATE: 20240423
